FAERS Safety Report 5173403-8 (Version None)
Quarter: 2006Q4

REPORT INFORMATION
  Report Type: 
  Country: None (occurrence: None)
  Receive Date: 20061206
  Receipt Date: 20061026
  Transmission Date: 20070319
  Serious: Yes (Death, Other)
  Sender: FDA-Public Use
  Company Number: 2006137684

PATIENT
  Age: 85 Year
  Sex: Male

DRUGS (1)
  1. CELEBREX [Suspect]
     Indication: PAIN
     Dosage: ORAL
     Route: 048
     Dates: start: 19990312

REACTIONS (7)
  - CARDIAC FAILURE CONGESTIVE [None]
  - CARDIOVASCULAR DISORDER [None]
  - CEREBROVASCULAR ACCIDENT [None]
  - INJURY [None]
  - PLEURAL EFFUSION [None]
  - PULMONARY EMBOLISM [None]
  - THALAMIC INFARCTION [None]
